FAERS Safety Report 25867660 (Version 1)
Quarter: 2025Q4

REPORT INFORMATION
  Report Type: Report from Study
  Country: US (occurrence: US)
  Receive Date: 20251001
  Receipt Date: 20251001
  Transmission Date: 20260117
  Serious: Yes (Other)
  Sender: ABBVIE
  Company Number: US-ABBVIE-6436055

PATIENT
  Age: 57 Year
  Sex: Male

DRUGS (1)
  1. VYALEV [Suspect]
     Active Substance: FOSCARBIDOPA\FOSLEVODOPA
     Indication: Parkinson^s disease
     Route: 058
     Dates: start: 20250414, end: 20250420

REACTIONS (3)
  - Catheter site cellulitis [Recovered/Resolved]
  - Scar [Unknown]
  - Surgery [Unknown]

NARRATIVE: CASE EVENT DATE: 20250101
